FAERS Safety Report 14681911 (Version 3)
Quarter: 2018Q2

REPORT INFORMATION
  Report Type: Report from Study
  Country: US (occurrence: US)
  Receive Date: 20180326
  Receipt Date: 20180412
  Transmission Date: 20180711
  Serious: Yes (Death, Hospitalization)
  Sender: FDA-Public Use
  Company Number: US-ACTELION-A-NJ2018-165587

PATIENT
  Age: 57 Year
  Sex: Female
  Weight: 63.49 kg

DRUGS (4)
  1. TRACLEER [Suspect]
     Active Substance: BOSENTAN
     Indication: PULMONARY ARTERIAL HYPERTENSION
     Dosage: 125 MG, BID
     Route: 048
     Dates: start: 20141230, end: 20180327
  2. SILDENAFIL CITRATE. [Concomitant]
     Active Substance: SILDENAFIL CITRATE
  3. VELETRI [Suspect]
     Active Substance: EPOPROSTENOL
     Indication: PULMONARY ARTERIAL HYPERTENSION
     Dosage: 30 NG/KG, PER MIN
     Route: 042
  4. COUMADIN [Concomitant]
     Active Substance: WARFARIN SODIUM

REACTIONS (31)
  - Gastrointestinal haemorrhage [Unknown]
  - Sepsis [Unknown]
  - Hypotension [Unknown]
  - Musculoskeletal pain [Unknown]
  - Duodenal ulcer perforation [Fatal]
  - Transfusion [Unknown]
  - Nausea [Unknown]
  - Headache [Unknown]
  - Skin abrasion [Unknown]
  - Mental status changes [Unknown]
  - Unresponsive to stimuli [Unknown]
  - Vomiting [Unknown]
  - Wheezing [Unknown]
  - Oedema peripheral [Unknown]
  - Pain in extremity [Unknown]
  - Pneumonia [Fatal]
  - Arthralgia [Unknown]
  - Postoperative respiratory failure [Fatal]
  - Pulmonary arterial hypertension [Fatal]
  - Appendicectomy [Unknown]
  - Syncope [Unknown]
  - Fall [Unknown]
  - Septic shock [Fatal]
  - Acute respiratory failure [Unknown]
  - Dyspnoea [Unknown]
  - Malaise [Unknown]
  - Diarrhoea [Unknown]
  - Pulmonary oedema [Unknown]
  - Hypoxia [Unknown]
  - Oedema [Unknown]
  - Drug dose omission [Unknown]
